FAERS Safety Report 8265568-6 (Version None)
Quarter: 2012Q2

REPORT INFORMATION
  Report Type: 
  Country: None (occurrence: None)
  Receive Date: 20120403
  Receipt Date: 20120326
  Transmission Date: 20120825
  Serious: Yes (Hospitalization)
  Sender: FDA-Public Use
  Company Number: 131918

PATIENT
  Age: 5 Year
  Sex: Female

DRUGS (2)
  1. CARBOPLATIN [Suspect]
     Indication: NONGERMINOMATOUS GERM CELL TUMOUR OF THE CNS
     Dosage: 400MG/M2 FOR THREE CONSECUTIVE DAYS
  2. ETOPOSIDE [Suspect]
     Indication: PRODUCT USED FOR UNKNOWN INDICATION
     Dosage: 100 MG/M2 FOR THREE CONSECUTIVE DAYS

REACTIONS (1)
  - VENOUS ANGIOMA OF BRAIN [None]
